FAERS Safety Report 18893105 (Version 1)
Quarter: 2021Q1

REPORT INFORMATION
  Report Type: Spontaneous
  Country: US (occurrence: US)
  Receive Date: 20210215
  Receipt Date: 20210215
  Transmission Date: 20210420
  Serious: No
  Sender: FDA-Public Use
  Company Number: US-SA-2021SA051683

PATIENT
  Age: 20 Year
  Sex: Female

DRUGS (8)
  1. DUPIXENT [Suspect]
     Active Substance: DUPILUMAB
     Indication: DERMATITIS ATOPIC
     Dosage: 300 MG, QOW
     Route: 058
  2. HYDROXYZINE HYDROCHLORIDE;PREDNISOLONE [Concomitant]
  3. ALBUTEROL [SALBUTAMOL] [Concomitant]
     Active Substance: ALBUTEROL
  4. MUPIROCIN. [Concomitant]
     Active Substance: MUPIROCIN
  5. DROSPIRENONE [Concomitant]
     Active Substance: DROSPIRENONE
  6. DUPIXENT [Suspect]
     Active Substance: DUPILUMAB
     Dosage: UNK
  7. BUPROPION. [Concomitant]
     Active Substance: BUPROPION
  8. FLOVENT [Concomitant]
     Active Substance: FLUTICASONE PROPIONATE

REACTIONS (2)
  - Dermatitis atopic [Unknown]
  - Product dose omission issue [Unknown]

NARRATIVE: CASE EVENT DATE: 2020
